FAERS Safety Report 9121893 (Version 1)
Quarter: 2012Q4

REPORT INFORMATION
  Report Type: Spontaneous
  Country: US (occurrence: None)
  Receive Date: 20121026
  Receipt Date: 20121026
  Transmission Date: 20130627
  Serious: No
  Sender: FDA-Public Use
  Company Number: 2012US-004360

PATIENT
  Age: 62 Year
  Sex: Male
  Weight: 72.1 kg

DRUGS (4)
  1. OMONTYS (PEGINESATIDE) SOLUTION FOR INJECTION [Suspect]
     Indication: NEPHROGENIC ANAEMIA
     Route: 042
     Dates: start: 20120901, end: 20120901
  2. ZEMPLAR (PARICALCITOL) [Concomitant]
  3. VENOFER (SACCHARATED IRON OXIDE) [Concomitant]
  4. HEPARIN [Concomitant]

REACTIONS (3)
  - Chest discomfort [None]
  - Dyspnoea [None]
  - Chest pain [None]
